FAERS Safety Report 8824072 (Version 1)
Quarter: 2012Q4

REPORT INFORMATION
  Report Type: 
  Country: US (occurrence: US)
  Receive Date: 20121003
  Receipt Date: 20121003
  Transmission Date: 20130627
  Serious: Yes (Other)
  Sender: FDA-Public Use
  Company Number: US-MERCK-1209USA011635

PATIENT
  Age: 83 Year
  Sex: Male

DRUGS (1)
  1. SINEMET CR [Suspect]
     Indication: PARKINSON^S DISEASE
     Dosage: 25mg/100mg, qid
     Route: 048
     Dates: start: 2007

REACTIONS (3)
  - Vascular graft [Unknown]
  - Depression [Not Recovered/Not Resolved]
  - Lethargy [Not Recovered/Not Resolved]
